FAERS Safety Report 17056710 (Version 2)
Quarter: 2019Q4

REPORT INFORMATION
  Report Type: Report from Study
  Country: None (occurrence: BR)
  Receive Date: 20191121
  Receipt Date: 20191203
  Transmission Date: 20200122
  Serious: Yes (Other)
  Sender: FDA-Public Use
  Company Number: BR-ABBVIE-19K-020-3001714-00

PATIENT
  Age: 45 Year
  Sex: Female
  Weight: 57 kg

DRUGS (3)
  1. HUMIRA [Suspect]
     Active Substance: ADALIMUMAB
     Indication: CROHN^S DISEASE
     Route: 058
     Dates: start: 20150101, end: 2019
  2. DESOGESTREL [Concomitant]
     Active Substance: DESOGESTREL
     Indication: UTERINE LEIOMYOMA
  3. HUMIRA [Suspect]
     Active Substance: ADALIMUMAB
     Route: 058

REACTIONS (10)
  - Proctalgia [Recovering/Resolving]
  - Uveitis [Unknown]
  - Crohn^s disease [Recovered/Resolved]
  - Unevaluable event [Recovering/Resolving]
  - Rectal fissure [Recovering/Resolving]
  - Vomiting [Recovering/Resolving]
  - Haemorrhage [Recovered/Resolved]
  - Retching [Recovering/Resolving]
  - Gastrointestinal pain [Recovering/Resolving]
  - Vaginal haemorrhage [Recovering/Resolving]

NARRATIVE: CASE EVENT DATE: 201907
